FAERS Safety Report 19441408 (Version 1)
Quarter: 2021Q2

REPORT INFORMATION
  Report Type: Spontaneous
  Country: US (occurrence: US)
  Receive Date: 20210618
  Receipt Date: 20210618
  Transmission Date: 20210717
  Serious: Yes (Life-Threatening, Hospitalization)
  Sender: FDA-Public Use
  Company Number: None

PATIENT
  Age: 66 Year
  Sex: Male
  Weight: 124.3 kg

DRUGS (3)
  1. TRIAMTERENE? HCTZ [Concomitant]
  2. MODERNA COVID?19 VACCINE [Concomitant]
     Active Substance: CX-024414
     Dates: start: 20210414, end: 20210512
  3. LUMASON [Suspect]
     Active Substance: SULFUR HEXAFLUORIDE
     Indication: X-RAY WITH CONTRAST
     Route: 042
     Dates: start: 20210615, end: 20210615

REACTIONS (10)
  - Atelectasis [None]
  - Hypercapnia [None]
  - Wheezing [None]
  - Bronchial wall thickening [None]
  - Supraventricular tachycardia [None]
  - Dyspnoea [None]
  - Cardiac arrest [None]
  - Chest pain [None]
  - Atrial fibrillation [None]
  - Hypoxia [None]

NARRATIVE: CASE EVENT DATE: 20210615
